FAERS Safety Report 17418934 (Version 4)
Quarter: 2020Q3

REPORT INFORMATION
  Report Type: Report from Study
  Country: None (occurrence: US)
  Receive Date: 20200210
  Receipt Date: 20200706
  Transmission Date: 20201102
  Serious: Yes (Other)
  Sender: FDA-Public Use
  Company Number: US-ABBVIE-20P-163-3261307-00

PATIENT
  Sex: Female

DRUGS (1)
  1. IMBRUVICA [Suspect]
     Active Substance: IBRUTINIB
     Indication: NON-HODGKIN^S LYMPHOMA
     Route: 048

REACTIONS (4)
  - Ingrowing nail [Unknown]
  - Dry skin [Recovering/Resolving]
  - Pruritus [Not Recovered/Not Resolved]
  - Erythema [Recovering/Resolving]
